FAERS Safety Report 7476071-5 (Version None)
Quarter: 2011Q2

REPORT INFORMATION
  Report Type: 
  Country: None (occurrence: None)
  Receive Date: 20110512
  Receipt Date: 20110511
  Transmission Date: 20111010
  Serious: Yes (Death)
  Sender: FDA-Public Use
  Company Number: VE-PFIZER INC-2011079439

PATIENT
  Age: 64 Year
  Sex: Male

DRUGS (1)
  1. ZOLOFT [Suspect]
     Dosage: 50 MG, UNK
     Route: 048

REACTIONS (2)
  - DIZZINESS [None]
  - MYOCARDIAL INFARCTION [None]
